FAERS Safety Report 5581842-6 (Version None)
Quarter: 2008Q1

REPORT INFORMATION
  Report Type: 
  Country: None (occurrence: None)
  Receive Date: 20080104
  Receipt Date: 20071227
  Transmission Date: 20080703
  Serious: Yes (Other)
  Sender: FDA-Public Use
  Company Number: US-PFIZER INC-2008000339

PATIENT
  Sex: Female
  Weight: 127.27 kg

DRUGS (3)
  1. CHANTIX [Suspect]
     Indication: SMOKING CESSATION THERAPY
     Dates: start: 20070101, end: 20071222
  2. LASIX [Concomitant]
     Indication: FLUID RETENTION
  3. ALBUTEROL [Concomitant]
     Indication: BRONCHITIS

REACTIONS (8)
  - ABNORMAL DREAMS [None]
  - DRUG INEFFECTIVE [None]
  - HYPERTENSION [None]
  - INCORRECT DOSE ADMINISTERED [None]
  - NIGHTMARE [None]
  - SCREAMING [None]
  - SLEEP DISORDER [None]
  - WRONG TECHNIQUE IN DRUG USAGE PROCESS [None]
